FAERS Safety Report 7819418-X (Version None)
Quarter: 2011Q4

REPORT INFORMATION
  Report Type: 
  Country: None (occurrence: None)
  Receive Date: 20111018
  Receipt Date: 20110428
  Transmission Date: 20120403
  Serious: No
  Sender: FDA-Public Use
  Company Number: US-ASTRAZENECA-2010SE48227

PATIENT
  Age: 70 Year
  Sex: Female
  Weight: 93.9 kg

DRUGS (16)
  1. KEFLEX [Concomitant]
     Dosage: PRN
  2. VENTOLIN [Concomitant]
  3. ASCORBIC ACID [Concomitant]
  4. VITAMIN D [Concomitant]
  5. LASIX [Concomitant]
  6. IBUPROFEN [Concomitant]
     Dosage: PRN
  7. LIPITOR [Concomitant]
  8. ASPIRIN [Concomitant]
  9. BIOTIN [Concomitant]
  10. SYMBICORT [Suspect]
     Indication: ASTHMA
     Dosage: 320 MCG BID
     Route: 055
     Dates: start: 20100101
  11. SYMBICORT [Suspect]
     Indication: CHRONIC OBSTRUCTIVE PULMONARY DISEASE
     Dosage: 320 MCG BID
     Route: 055
     Dates: start: 20100101
  12. TOPROL-XL [Suspect]
     Route: 048
  13. NEURONTIN [Concomitant]
  14. AVALIDE [Concomitant]
  15. POTASSIUM [Concomitant]
  16. CALCIUM CARBONATE [Concomitant]

REACTIONS (6)
  - NASOPHARYNGITIS [None]
  - PNEUMONIA [None]
  - ALOPECIA [None]
  - APHONIA [None]
  - ONYCHOCLASIS [None]
  - DYSPNOEA [None]
